FAERS Safety Report 16970418 (Version 1)
Quarter: 2019Q4

REPORT INFORMATION
  Report Type: Report from Study
  Country: US (occurrence: US)
  Receive Date: 20191029
  Receipt Date: 20191029
  Transmission Date: 20200122
  Serious: Yes (Hospitalization)
  Sender: FDA-Public Use
  Company Number: US-PFIZER INC-2019457396

PATIENT
  Age: 16 Year
  Sex: Female
  Weight: 76.1 kg

DRUGS (7)
  1. METHOTREXATE SODIUM. [Suspect]
     Active Substance: METHOTREXATE SODIUM
     Indication: LYMPHOCYTIC LEUKAEMIA
     Dosage: 9375 MG, DAY 1
     Route: 042
     Dates: start: 20190924
  2. VINCRISTINE SULFATE. [Suspect]
     Active Substance: VINCRISTINE SULFATE
     Indication: LYMPHOCYTIC LEUKAEMIA
     Dosage: 2 MG, DAY 1
     Route: 042
     Dates: start: 20190924
  3. LEUCOVORIN. [Suspect]
     Active Substance: LEUCOVORIN
     Dosage: 30 MG, EVERY 3 HOURS
     Dates: start: 20190926
  4. MERCAPTOPURINE. [Suspect]
     Active Substance: MERCAPTOPURINE
     Indication: LYMPHOCYTIC LEUKAEMIA
     Dosage: 25 MG, TABLET, DAYS 1-9
     Route: 048
     Dates: start: 20190924
  5. INCB018424 [Suspect]
     Active Substance: RUXOLITINIB
     Indication: LYMPHOCYTIC LEUKAEMIA
     Dosage: 95 MG, TABLET, 2X/DAY, DAYS 1-14
     Route: 048
     Dates: start: 20190709
  6. METHOTREXATE SODIUM. [Suspect]
     Active Substance: METHOTREXATE SODIUM
     Indication: LYMPHOCYTIC LEUKAEMIA
     Dosage: 15 MG, DAY 1
     Route: 037
     Dates: start: 20190924
  7. LEUCOVORIN. [Suspect]
     Active Substance: LEUCOVORIN
     Indication: LYMPHOCYTIC LEUKAEMIA
     Dosage: 30 MG, TABLET, DAYS 3-4
     Route: 042
     Dates: start: 20190926, end: 20190926

REACTIONS (1)
  - Nephropathy toxic [Recovered/Resolved]

NARRATIVE: CASE EVENT DATE: 20190926
